FAERS Safety Report 4837235-X (Version None)
Quarter: 2005Q4

REPORT INFORMATION
  Report Type: 
  Country: None (occurrence: None)
  Receive Date: 20051128
  Receipt Date: 20050221
  Transmission Date: 20060501
  Serious: No
  Sender: FDA-Public Use
  Company Number: GB-RB-1352-2005

PATIENT
  Age: 30 Year
  Sex: Female
  Weight: 73 kg

DRUGS (4)
  1. BUPRENORPHINE HCL [Suspect]
     Route: 060
  2. DIAZEPAM [Concomitant]
     Route: 048
  3. ZOPICLONE [Concomitant]
     Route: 048
  4. AMITRIPTYLINE HCL [Concomitant]
     Indication: DEPRESSION
     Route: 048

REACTIONS (2)
  - DRUG EXPOSURE DURING PREGNANCY [None]
  - FORCEPS DELIVERY [None]
